FAERS Safety Report 20155013 (Version 1)
Quarter: 2021Q4

REPORT INFORMATION
  Report Type: Spontaneous
  Country: US (occurrence: None)
  Receive Date: 20211206
  Receipt Date: 20211206
  Transmission Date: 20220303
  Serious: No
  Sender: FDA-Public Use
  Company Number: None

PATIENT
  Age: 77 Year
  Sex: Male

DRUGS (1)
  1. DROXIDOPA [Suspect]
     Active Substance: DROXIDOPA
     Indication: Orthostatic hypotension
     Dosage: FREQUENCY: OTHER
     Route: 048
     Dates: start: 20210826

REACTIONS (5)
  - Orthostatic hypotension [None]
  - Dizziness [None]
  - Fall [None]
  - Product communication issue [None]
  - Incorrect dose administered [None]

NARRATIVE: CASE EVENT DATE: 20211115
